FAERS Safety Report 9456448 (Version 2)
Quarter: 2013Q3

REPORT INFORMATION
  Report Type: Spontaneous
  Country: JP (occurrence: JP)
  Receive Date: 20130813
  Receipt Date: 20130828
  Transmission Date: 20140515
  Serious: Yes (Death)
  Sender: FDA-Public Use
  Company Number: JP-OTSUKA-JP-2013-12950

PATIENT
  Sex: Female

DRUGS (3)
  1. SAMSCA [Suspect]
     Indication: CARDIAC FAILURE
     Dosage: 15 MG MILLIGRAM(S), QD
     Route: 048
     Dates: start: 201307, end: 201307
  2. SAMSCA [Suspect]
     Dosage: 7.5 MG MILLIGRAM(S), QD
     Route: 048
     Dates: start: 201307, end: 201308
  3. LASIX [Concomitant]
     Dosage: UNK
     Route: 048
     Dates: end: 201308

REACTIONS (1)
  - Hepatic failure [Fatal]
